FAERS Safety Report 6221278-8 (Version None)
Quarter: 2009Q2

REPORT INFORMATION
  Report Type: 
  Country: None (occurrence: None)
  Receive Date: 20090610
  Receipt Date: 20090520
  Transmission Date: 20091009
  Serious: Yes (Other)
  Sender: FDA-Public Use
  Company Number: GB-PFIZER INC-2009215851

PATIENT
  Age: 56 Year

DRUGS (7)
  1. ATORVASTATIN CALCIUM [Suspect]
     Dosage: 10 MG, UNK
     Route: 048
     Dates: start: 20080813, end: 20080814
  2. ADCAL-D3 [Concomitant]
     Dosage: UNK
     Route: 048
     Dates: start: 20080428
  3. AMLODIPINE BESILATE [Concomitant]
     Indication: HYPERTENSION
     Dosage: 5 MG, UNK
     Route: 048
     Dates: start: 20070816
  4. ESOMEPRAZOLE [Concomitant]
     Dosage: 20 G, UNK
     Route: 048
  5. OLANZAPINE [Concomitant]
     Indication: DEPRESSION
     Dosage: 2.5 MG, UNK
     Route: 048
     Dates: start: 20080205
  6. SINGULAIR ^DIECKMANN^ [Concomitant]
     Indication: ASTHMA
     Dosage: 10 MG, UNK
     Dates: start: 20071010
  7. MIRTAZAPINE [Concomitant]
     Indication: DEPRESSION
     Dosage: 45 MG, UNK
     Route: 048
     Dates: start: 20071109

REACTIONS (1)
  - SWOLLEN TONGUE [None]
